FAERS Safety Report 19226726 (Version 1)
Quarter: 2021Q2

REPORT INFORMATION
  Report Type: Report from Study
  Country: CA (occurrence: CA)
  Receive Date: 20210506
  Receipt Date: 20210506
  Transmission Date: 20210717
  Serious: Yes (Other)
  Sender: FDA-Public Use
  Company Number: CA-ASTRAZENECA-2021A136087

PATIENT
  Sex: Female

DRUGS (2)
  1. TAXOL [Concomitant]
     Active Substance: PACLITAXEL
     Route: 065
     Dates: start: 20180615, end: 20181015
  2. LYNPARZA [Suspect]
     Active Substance: OLAPARIB
     Indication: BREAST CANCER FEMALE
     Dosage: UNKNOWN
     Route: 048
     Dates: start: 20190430

REACTIONS (1)
  - Malignant neoplasm progression [Unknown]
